FAERS Safety Report 10562772 (Version 1)
Quarter: 2014Q4

REPORT INFORMATION
  Report Type: Spontaneous
  Country: FR (occurrence: FR)
  Receive Date: 20141104
  Receipt Date: 20141104
  Transmission Date: 20150529
  Serious: Yes (Hospitalization)
  Sender: FDA-Public Use
  Company Number: FR-JNJFOC-20141014984

PATIENT
  Age: 84 Year
  Sex: Female

DRUGS (6)
  1. CORDARONE [Concomitant]
     Active Substance: AMIODARONE HYDROCHLORIDE
     Indication: PRODUCT USED FOR UNKNOWN INDICATION
     Route: 065
  2. PARACETAMOL [Concomitant]
     Active Substance: ACETAMINOPHEN
     Indication: PRODUCT USED FOR UNKNOWN INDICATION
     Route: 048
  3. CALCIPARINE [Concomitant]
     Active Substance: HEPARIN CALCIUM
     Indication: PRODUCT USED FOR UNKNOWN INDICATION
     Dosage: DOSE:0.2(UNSPECIFIED UNITS)
     Route: 065
  4. TEMESTA [Concomitant]
     Active Substance: LORAZEPAM
     Indication: PRODUCT USED FOR UNKNOWN INDICATION
     Route: 065
  5. DUROGESIC [Suspect]
     Active Substance: FENTANYL
     Indication: ANALGESIC THERAPY
     Route: 062
     Dates: start: 20140605, end: 20140610
  6. KARDEGIC [Concomitant]
     Active Substance: ASPIRIN LYSINE
     Indication: PRODUCT USED FOR UNKNOWN INDICATION
     Route: 048

REACTIONS (4)
  - Fall [Unknown]
  - Confusional state [Recovered/Resolved]
  - Vomiting [Recovered/Resolved]
  - Headache [Recovered/Resolved]

NARRATIVE: CASE EVENT DATE: 20140610
